FAERS Safety Report 19441203 (Version 1)
Quarter: 2021Q2

REPORT INFORMATION
  Report Type: Spontaneous
  Country: DK (occurrence: DK)
  Receive Date: 20210621
  Receipt Date: 20210621
  Transmission Date: 20210717
  Serious: Yes (Death)
  Sender: FDA-Public Use
  Company Number: DK-ROCHE-2852125

PATIENT
  Age: 45 Year
  Sex: Male
  Weight: 100 kg

DRUGS (5)
  1. METHADONE [Suspect]
     Active Substance: METHADONE HYDROCHLORIDE
     Indication: PAIN
     Route: 048
     Dates: start: 2021
  2. VERALOC [Suspect]
     Active Substance: VERAPAMIL HYDROCHLORIDE
     Indication: CLUSTER HEADACHE
     Route: 048
     Dates: start: 20210211
  3. DIAZEPAM. [Suspect]
     Active Substance: DIAZEPAM
     Indication: SEDATIVE THERAPY
     Dosage: STRENGTH: UNKNOWN
     Route: 065
     Dates: start: 20180526
  4. PARACETAMOL [Concomitant]
     Active Substance: ACETAMINOPHEN
     Indication: PAIN
     Dates: start: 20170715
  5. GABAPENTIN. [Concomitant]
     Active Substance: GABAPENTIN
     Indication: PAIN
     Dates: start: 20201104

REACTIONS (2)
  - Toxicity to various agents [Fatal]
  - Sudden death [Fatal]

NARRATIVE: CASE EVENT DATE: 20210308
